FAERS Safety Report 6300793-2 (Version None)
Quarter: 2009Q3

REPORT INFORMATION
  Report Type: 
  Country: None (occurrence: None)
  Receive Date: 20090807
  Receipt Date: 20090724
  Transmission Date: 20100115
  Serious: Yes (Life-Threatening, Hospitalization)
  Sender: FDA-Public Use
  Company Number: JP-BRISTOL-MYERS SQUIBB COMPANY-14642128

PATIENT
  Age: 68 Year
  Sex: Male
  Weight: 64 kg

DRUGS (7)
  1. ERBITUX [Suspect]
     Indication: RECTAL CANCER
     Dosage: 1ST INF 14MAY09;(300MG)04JUN09-ONGOING GIVEN 400MG/M2
     Route: 042
     Dates: start: 20090514, end: 20090514
  2. IRINOTECAN HCL [Concomitant]
     Indication: RECTAL CANCER
     Dosage: 1ST INF 14MAY-14MAY09(250MG/M2);04JUN09(190MG/M2) ALSO GIVEN 120MG/M2
     Route: 042
     Dates: start: 20090514, end: 20090514
  3. POLARAMINE [Concomitant]
     Indication: PREMEDICATION
     Dosage: 14MAY09-ONG ALSO GIVEN 0N 04JUN09.
     Route: 042
     Dates: start: 20090514
  4. DEXART [Concomitant]
     Indication: PREMEDICATION
     Dosage: 14MAY09-ONG
     Route: 042
     Dates: start: 20090514
  5. GRANISETRON HCL [Concomitant]
     Indication: PREMEDICATION
     Dosage: 14MAY09-ONG
     Route: 042
     Dates: start: 20090514
  6. WARFARIN POTASSIUM [Concomitant]
     Indication: PULMONARY EMBOLISM
     Dosage: FORMULATION: TABS
     Route: 048
     Dates: start: 20060201
  7. WARFARIN POTASSIUM [Concomitant]
     Indication: CEREBELLAR EMBOLISM
     Dosage: FORMULATION: TABS
     Route: 048
     Dates: start: 20060201

REACTIONS (4)
  - HEPATIC FUNCTION ABNORMAL [None]
  - PLATELET COUNT DECREASED [None]
  - PYREXIA [None]
  - RENAL IMPAIRMENT [None]
